FAERS Safety Report 6745458-8 (Version None)
Quarter: 2010Q2

REPORT INFORMATION
  Report Type: 
  Country: None (occurrence: None)
  Receive Date: 20100528
  Receipt Date: 20100520
  Transmission Date: 20101027
  Serious: Yes (Hospitalization)
  Sender: FDA-Public Use
  Company Number: KR-BAYER-201025983GPV

PATIENT
  Age: 75 Year
  Sex: Male
  Weight: 61 kg

DRUGS (17)
  1. SORAFENIB [Suspect]
     Indication: HEPATIC NEOPLASM MALIGNANT
     Dosage: TOTAL DAILY DOSE: 800 MG  UNIT DOSE: 200 MG
     Route: 048
     Dates: start: 20100426, end: 20100507
  2. ADENINE [Concomitant]
     Dates: start: 20100419
  3. URSODIOL [Concomitant]
     Dates: start: 20100419
  4. ARGININE [Concomitant]
     Dates: start: 20100419
  5. LANSOPRAZOLE [Concomitant]
     Dates: start: 20100422
  6. ACETYLCYSTEINE [Concomitant]
     Dates: start: 20100422, end: 20100424
  7. FENTANYL [Concomitant]
     Dates: start: 20100423
  8. CARBOCISTEINE [Concomitant]
     Dates: start: 20100425, end: 20100428
  9. TRAMADOL HYDROCHLORIDE [Concomitant]
     Dates: start: 20100426, end: 20100426
  10. LAMIVUDINE [Concomitant]
     Dates: start: 20100427
  11. MORPHINE SULFATE [Concomitant]
     Dates: start: 20100413
  12. OXYCODONE HYDROCHLORIDE [Concomitant]
     Dates: start: 20100427
  13. L-CARNITINE [Concomitant]
     Dates: start: 20100419
  14. BIPHENYL DIMETHYL DICARBOXYLATE [Concomitant]
     Dates: start: 20100419
  15. LIVER EXT [Concomitant]
     Dates: start: 20100419
  16. VITAMIN B-12 [Concomitant]
     Dates: start: 20100419
  17. VITAMIN B6 [Concomitant]
     Dates: start: 20100419

REACTIONS (2)
  - CHEILITIS [None]
  - HERPES SIMPLEX [None]
